FAERS Safety Report 8573836-3 (Version None)
Quarter: 2012Q3

REPORT INFORMATION
  Report Type: 
  Country: None (occurrence: None)
  Receive Date: 20120806
  Receipt Date: 20110914
  Transmission Date: 20120928
  Serious: No
  Sender: FDA-Public Use
  Company Number: US-GLAXOSMITHKLINE-A0944623A

PATIENT
  Age: 63 Year
  Sex: Female

DRUGS (10)
  1. UNKNOWN MEDICATION [Concomitant]
  2. SIMVASTATIN [Concomitant]
  3. PREDNISOLONE [Concomitant]
  4. AMITRIPTYLINE HCL [Concomitant]
  5. FLUTICASONE PROPIONATE [Suspect]
     Indication: ASTHMA
     Dosage: 2PUFF TWICE PER DAY
     Route: 055
     Dates: start: 20110811
  6. POTASSIUM [Concomitant]
  7. SYNTHROID [Concomitant]
  8. NEXIUM [Concomitant]
  9. SINGULAIR [Concomitant]
  10. COUMADIN [Concomitant]

REACTIONS (4)
  - DRUG INEFFECTIVE [None]
  - INSOMNIA [None]
  - PRODUCT QUALITY ISSUE [None]
  - COUGH [None]
